FAERS Safety Report 19057033 (Version 1)
Quarter: 2021Q1

REPORT INFORMATION
  Report Type: Spontaneous
  Country: US (occurrence: US)
  Receive Date: 20210325
  Receipt Date: 20210325
  Transmission Date: 20210420
  Serious: Yes (Other)
  Sender: FDA-Public Use
  Company Number: US-PFIZER INC-2021293349

PATIENT
  Age: 53 Year
  Sex: Female
  Weight: 54.42 kg

DRUGS (2)
  1. VITAMIN K [Concomitant]
     Active Substance: PHYTONADIONE
     Dosage: UNK
  2. IBRANCE [Suspect]
     Active Substance: PALBOCICLIB
     Indication: BREAST CANCER FEMALE
     Dosage: 125 MG, CYCLIC (DAILY 21 DAYS)
     Route: 048
     Dates: start: 20210226

REACTIONS (2)
  - Condition aggravated [Unknown]
  - Ascites [Unknown]
